FAERS Safety Report 9894267 (Version 2)
Quarter: 2014Q3

REPORT INFORMATION
  Report Type: Spontaneous
  Country: US (occurrence: US)
  Receive Date: 20140213
  Receipt Date: 20140707
  Transmission Date: 20150326
  Serious: Yes (Hospitalization)
  Sender: FDA-Public Use
  Company Number: US-GLAXOSMITHKLINE-A1060732A

PATIENT
  Age: 62 Year
  Sex: Female

DRUGS (1)
  1. PROMACTA [Suspect]
     Active Substance: ELTROMBOPAG OLAMINE
     Indication: VENOUS THROMBOSIS
     Dosage: 50MG PER DAY
     Route: 048
     Dates: start: 20130606

REACTIONS (2)
  - Drug dose omission [Unknown]
  - Hernia [Unknown]
